FAERS Safety Report 8165850-7 (Version None)
Quarter: 2012Q1

REPORT INFORMATION
  Report Type: 
  Country: None (occurrence: None)
  Receive Date: 20120227
  Receipt Date: 20120216
  Transmission Date: 20120608
  Serious: Yes (Hospitalization)
  Sender: FDA-Public Use
  Company Number: US-CELGENEUS-163-21880-12021975

PATIENT
  Sex: Female
  Weight: 60.4 kg

DRUGS (2)
  1. VIDAZA [Suspect]
     Indication: MULTIPLE MYELOMA
     Dosage: 75 MILLIGRAM/SQ. METER
     Route: 058
     Dates: start: 20111212, end: 20111216
  2. REVLIMID [Suspect]
     Indication: MULTIPLE MYELOMA
     Dosage: 10 MILLIGRAM
     Route: 048
     Dates: start: 20111217, end: 20120102

REACTIONS (2)
  - ENGRAFTMENT SYNDROME [None]
  - ATRIAL FIBRILLATION [None]
